FAERS Safety Report 5808091-8 (Version None)
Quarter: 2008Q3

REPORT INFORMATION
  Report Type: 
  Country: None (occurrence: None)
  Receive Date: 20080711
  Receipt Date: 20080630
  Transmission Date: 20090109
  Serious: Yes (Hospitalization, Other)
  Sender: FDA-Public Use
  Company Number: DE-PFIZER INC-2008055507

PATIENT
  Age: 60 Year
  Sex: Male

DRUGS (3)
  1. LYRICA [Suspect]
     Indication: ANXIETY DISORDER
     Route: 048
  2. FENTANYL [Concomitant]
     Dates: start: 20080404, end: 20080404
  3. PROPOFOL [Concomitant]
     Dates: start: 20080404, end: 20080404

REACTIONS (2)
  - RENAL FAILURE [None]
  - TENDON RUPTURE [None]
